FAERS Safety Report 19300470 (Version 11)
Quarter: 2023Q2

REPORT INFORMATION
  Report Type: Report from Study
  Country: RU (occurrence: RU)
  Receive Date: 20210525
  Receipt Date: 20230417
  Transmission Date: 20230721
  Serious: Yes (Life-Threatening)
  Sender: FDA-Public Use
  Company Number: NVSC2021RU114309

PATIENT
  Age: 48 Year
  Sex: Female
  Weight: 76 kg

DRUGS (7)
  1. CAPECITABINE [Suspect]
     Active Substance: CAPECITABINE
     Indication: Breast cancer metastatic
     Dosage: 2000 MG/M2, OTHER
     Route: 048
     Dates: start: 20200910, end: 20210514
  2. CAPECITABINE [Suspect]
     Active Substance: CAPECITABINE
     Dosage: 2000 MG/M2, BID
     Route: 048
     Dates: start: 20210802
  3. DOCETAXEL [Suspect]
     Active Substance: DOCETAXEL
     Indication: Breast cancer metastatic
     Dosage: 75 MG/M2, Q3W
     Route: 042
     Dates: start: 20200910, end: 20210430
  4. UREA [Concomitant]
     Active Substance: UREA
     Indication: Dry skin
     Dosage: UNK
     Route: 065
     Dates: start: 20201016
  5. IRON POLYMALTOSE [Concomitant]
     Active Substance: IRON POLYMALTOSE
     Indication: Anaemia
     Dosage: UNK
     Route: 065
     Dates: start: 20210115
  6. SPIRONOLACTONE [Concomitant]
     Active Substance: SPIRONOLACTONE
     Indication: Generalised oedema
     Dosage: UNK
     Route: 065
     Dates: start: 20210320
  7. DEXAMETHASONE [Concomitant]
     Active Substance: DEXAMETHASONE
     Indication: Chemotherapy side effect prophylaxis
     Dosage: UNK
     Route: 065
     Dates: start: 20210429, end: 20210501

REACTIONS (1)
  - Pulmonary embolism [Not Recovered/Not Resolved]

NARRATIVE: CASE EVENT DATE: 20210518
